FAERS Safety Report 4330766-0 (Version None)
Quarter: 2004Q1

REPORT INFORMATION
  Report Type: 
  Country: None (occurrence: None)
  Receive Date: 20040331
  Receipt Date: 20040326
  Transmission Date: 20041129
  Serious: Yes (Hospitalization)
  Sender: FDA-Public Use
  Company Number: THQ2004A00322

PATIENT
  Age: 67 Year

DRUGS (1)
  1. LEUPROLIDE ACETATE [Suspect]
     Dosage: UNKNOWN (UNKNOWN); UNKNOWN
     Route: 065

REACTIONS (1)
  - CHOLECYSTITIS [None]
